FAERS Safety Report 4980543-2 (Version None)
Quarter: 2006Q2

REPORT INFORMATION
  Report Type: 
  Country: None (occurrence: None)
  Receive Date: 20060424
  Receipt Date: 20060307
  Transmission Date: 20061013
  Serious: Yes (Hospitalization)
  Sender: FDA-Public Use
  Company Number: US-BRISTOL-MYERS SQUIBB COMPANY-13306261

PATIENT
  Age: 58 Year
  Sex: Male
  Weight: 74 kg

DRUGS (4)
  1. ERBITUX [Suspect]
     Indication: NEOPLASM MALIGNANT
     Dosage: INDUC:860 MG(400 MG/M2)28-DEC-2005 F/B 538 MG(250 MG/M2)WEEKLY F/B538MGIVSTARTING 25-JAN-06 WEEKLY.
     Route: 042
     Dates: start: 20060221, end: 20060221
  2. CARBOPLATIN [Suspect]
     Indication: NEOPLASM MALIGNANT
     Dosage: INITIATED ON 25-JAN-2006.
     Route: 042
     Dates: start: 20060221, end: 20060221
  3. TAXOL [Suspect]
     Indication: NEOPLASM MALIGNANT
     Dosage: 40 MG/M2 INITIATED ON 25-JAN-2006.
     Route: 042
     Dates: start: 20060221, end: 20060221
  4. RADIATION THERAPY [Suspect]
     Indication: NEOPLASM MALIGNANT
     Dosage: 180 CGY DAILY EXCEPT W/E AND HOLIDAYS INITIATED ON 25-JAN-2006.  INTERRUPTED ON 27-FEB-2006.
     Dates: start: 20060224, end: 20060224

REACTIONS (4)
  - ASTHENIA [None]
  - DEHYDRATION [None]
  - DRUG ERUPTION [None]
  - WEIGHT DECREASED [None]
